FAERS Safety Report 6333328-9 (Version None)
Quarter: 2009Q3

REPORT INFORMATION
  Report Type: 
  Country: None (occurrence: None)
  Receive Date: 20090828
  Receipt Date: 20090825
  Transmission Date: 20100115
  Serious: Yes (Life-Threatening)
  Sender: FDA-Public Use
  Company Number: GB-JNJCH-2009017967

PATIENT
  Sex: Male

DRUGS (3)
  1. CETIRIZINE HYDROCHLORIDE [Suspect]
     Indication: SEASONAL ALLERGY
     Route: 048
  2. CARBAMAZEPINE [Concomitant]
     Indication: EPILEPSY
     Dosage: TEXT:UNSPECIFIED
     Route: 065
  3. LAMOTRIGINE [Concomitant]
     Indication: EPILEPSY
     Dosage: TEXT:UNSPECIFIED
     Route: 048

REACTIONS (1)
  - CONVULSION [None]
